FAERS Safety Report 22281387 (Version 2)
Quarter: 2023Q2

REPORT INFORMATION
  Report Type: Other
  Country: IR (occurrence: IR)
  Receive Date: 20230504
  Receipt Date: 20230512
  Transmission Date: 20230722
  Serious: Yes (Life-Threatening, Hospitalization)
  Sender: FDA-Public Use
  Company Number: IR-ALVOGEN-2023091417

PATIENT
  Age: 25 Year
  Sex: Male

DRUGS (4)
  1. LIDOCAINE [Suspect]
     Active Substance: LIDOCAINE
     Indication: Pruritus
     Dosage: 5% (70?G/10G) FOR APPROXIMATELY 2?WEEKS. ?FIRST TUBE
     Route: 061
  2. LIDOCAINE [Suspect]
     Active Substance: LIDOCAINE
     Indication: Pruritus
     Dosage: 5% (70?G/10G) FOR APPROXIMATELY 2?WEEKS. SECOND TUBE
     Route: 061
  3. BENZOCAINE [Suspect]
     Active Substance: BENZOCAINE
     Indication: Pruritus
     Dosage: 5% (60?G/10?G) FOR APPROXIMATELY 2?WEEKS.?FIRST TUBE
     Route: 061
  4. BENZOCAINE [Suspect]
     Active Substance: BENZOCAINE
     Indication: Pruritus
     Dosage: 5% (60?G/10?G) FOR APPROXIMATELY 2?WEEKS.?SECOND TUBE.
     Route: 061

REACTIONS (4)
  - Haemolysis [Recovered/Resolved]
  - Methaemoglobinaemia [Recovered/Resolved]
  - Self-medication [Unknown]
  - Intentional product misuse [Unknown]
